FAERS Safety Report 6077380-7 (Version None)
Quarter: 2009Q1

REPORT INFORMATION
  Report Type: 
  Country: None (occurrence: None)
  Receive Date: 20090213
  Receipt Date: 20090130
  Transmission Date: 20090719
  Serious: Yes (Hospitalization)
  Sender: FDA-Public Use
  Company Number: DE-GENENTECH-277030

PATIENT
  Sex: Male

DRUGS (7)
  1. BEVACIZUMAB [Suspect]
     Indication: NON-SMALL CELL LUNG CANCER
     Dosage: 900 MG, UNK
     Route: 042
  2. CARBOPLATIN [Concomitant]
     Indication: NON-SMALL CELL LUNG CANCER
  3. TAXOL [Concomitant]
     Indication: NON-SMALL CELL LUNG CANCER
  4. CLEMASTINE FUMARATE [Suspect]
     Indication: PREMEDICATION
  5. DEXAMETHASONE TAB [Concomitant]
     Indication: PREMEDICATION
  6. RANITIDINE [Concomitant]
     Indication: PREMEDICATION
  7. ONDANSETRON [Concomitant]
     Indication: PROPHYLAXIS OF NAUSEA AND VOMITING

REACTIONS (2)
  - EMPYEMA [None]
  - PNEUMOTHORAX [None]
